FAERS Safety Report 14607070 (Version 12)
Quarter: 2022Q4

REPORT INFORMATION
  Report Type: Spontaneous
  Country: US (occurrence: None)
  Receive Date: 20180307
  Receipt Date: 20221028
  Transmission Date: 20230112
  Serious: Yes (Other)
  Sender: FDA-Public Use
  Company Number: US-ROCHE-2081802

PATIENT
  Age: 33 Year
  Sex: Female

DRUGS (1)
  1. OCREVUS [Suspect]
     Active Substance: OCRELIZUMAB
     Indication: Relapsing-remitting multiple sclerosis
     Dosage: PART 2 OF OCRELIZUMAB INFUSION (/AUG/2016). SHE RECEIVED TOTAL 5 INFUSIONS NOW.
     Route: 042
     Dates: start: 20160801

REACTIONS (22)
  - Major depression [Recovered/Resolved]
  - Flushing [Recovered/Resolved]
  - Erythema [Recovered/Resolved]
  - Heart rate increased [Recovered/Resolved]
  - Feeling hot [Recovered/Resolved]
  - Pruritus [Recovered/Resolved]
  - Fatigue [Recovered/Resolved]
  - Mood swings [Recovered/Resolved]
  - Throat tightness [Recovered/Resolved]
  - Dyspnoea [Recovered/Resolved]
  - Flushing [Recovered/Resolved]
  - Erythema [Recovered/Resolved]
  - Pruritus [Unknown]
  - Infusion related reaction [Recovered/Resolved]
  - Pharyngeal swelling [Recovered/Resolved]
  - Euphoric mood [Not Recovered/Not Resolved]
  - Depressed mood [Not Recovered/Not Resolved]
  - Fatigue [Not Recovered/Not Resolved]
  - Emotional disorder [Not Recovered/Not Resolved]
  - Mental disorder [Not Recovered/Not Resolved]
  - Throat tightness [Unknown]
  - Nausea [Unknown]

NARRATIVE: CASE EVENT DATE: 20160801
